FAERS Safety Report 9816839 (Version 1)
Quarter: 2014Q1

REPORT INFORMATION
  Report Type: Spontaneous
  Country: FR (occurrence: FR)
  Receive Date: 20140114
  Receipt Date: 20140114
  Transmission Date: 20141002
  Serious: Yes (Death)
  Sender: FDA-Public Use
  Company Number: FR-MPIJNJ-2014MPI000056

PATIENT
  Sex: 0

DRUGS (6)
  1. VELCADE [Suspect]
     Indication: PLASMA CELL LEUKAEMIA
     Dosage: 1.3 MG/M2, ON DAYS 1, 4, 8, 11 OF A 21 DAY CYCLE (ALTERNATE CYCLES)
  2. VELCADE [Suspect]
     Dosage: 1.3 UNK, ON DAYS 1 AND 8 OF A 21 DAY CYCLE (ALTERNATE CYCLES)
  3. DEXAMETHASONE [Suspect]
     Indication: PLASMA CELL LEUKAEMIA
     Dosage: 40 MG, ON DAYS 1, 4, 8, 11 OF A 21 DAY CYCLE (ALTERNATE CYCLES)
  4. DEXAMETHASONE [Suspect]
     Dosage: 40 MG, ON DAYS 1 AND 8 OF A 21 DAY CYCLE (ALTERNATE CYCLES)
  5. DOXORUBICIN [Suspect]
     Indication: PLASMA CELL LEUKAEMIA
     Dosage: 30 MG/M2, ON DAY 4 OF A 21 DAY CYCLE
  6. CYCLOPHOSPHAMIDE [Suspect]
     Indication: PLASMA CELL LEUKAEMIA
     Dosage: 300 MG/M2, ON DAY 1, 8 OF A 21 DAY CYCLE

REACTIONS (1)
  - Death [Fatal]
